FAERS Safety Report 10843982 (Version 2)
Quarter: 2015Q1

REPORT INFORMATION
  Report Type: Spontaneous
  Country: DE (occurrence: DE)
  Receive Date: 20150220
  Receipt Date: 20150305
  Transmission Date: 20150721
  Serious: Yes (Hospitalization)
  Sender: FDA-Public Use
  Company Number: DE-ABBVIE-15P-062-1348787-00

PATIENT
  Age: 71 Year
  Sex: Male

DRUGS (4)
  1. QUETIAPINE [Concomitant]
     Active Substance: QUETIAPINE
     Indication: PARKINSON^S DISEASE
     Route: 048
  2. VITAMIN B12 [Concomitant]
     Active Substance: CYANOCOBALAMIN
     Indication: PRODUCT USED FOR UNKNOWN INDICATION
     Route: 058
  3. DUODOPA [Suspect]
     Active Substance: CARBIDOPA\LEVODOPA
     Indication: PARKINSON^S DISEASE
     Dosage: MD 11ML, CRD 5.5ML/H, ED 1.5ML
     Route: 050
     Dates: start: 20150120
  4. LEVODOPA [Concomitant]
     Active Substance: LEVODOPA
     Indication: PRODUCT USED FOR UNKNOWN INDICATION
     Dosage: 200/50 MG
     Route: 048

REACTIONS (3)
  - Cerebrovascular accident [Not Recovered/Not Resolved]
  - Hemiparesis [Recovering/Resolving]
  - Cerebral infarction [Recovering/Resolving]

NARRATIVE: CASE EVENT DATE: 20150212
